FAERS Safety Report 6670401-X (Version None)
Quarter: 2010Q2

REPORT INFORMATION
  Report Type: 
  Country: None (occurrence: None)
  Receive Date: 20100407
  Receipt Date: 20100330
  Transmission Date: 20101027
  Serious: Yes (Hospitalization)
  Sender: FDA-Public Use
  Company Number: US-BIOGENIDEC-2009BI041128

PATIENT
  Age: 39 Year
  Sex: Female

DRUGS (1)
  1. AVONEX [Suspect]
     Indication: MULTIPLE SCLEROSIS
     Route: 030
     Dates: start: 19960501, end: 19971101

REACTIONS (4)
  - ABDOMINAL ADHESIONS [None]
  - PELVIC ADHESIONS [None]
  - PERITONEAL HAEMORRHAGE [None]
  - UTERINE LEIOMYOMA [None]
